FAERS Safety Report 17867726 (Version 1)
Quarter: 2020Q2

REPORT INFORMATION
  Report Type: Report from Study
  Country: US (occurrence: US)
  Receive Date: 20200605
  Receipt Date: 20200605
  Transmission Date: 20200714
  Serious: Yes (Death, Hospitalization, Other)
  Sender: FDA-Public Use
  Company Number: US-AGIOS-1810US00239

PATIENT

DRUGS (5)
  1. SODIUM CHLORIDE. [Concomitant]
     Active Substance: SODIUM CHLORIDE
     Indication: PRODUCT USED FOR UNKNOWN INDICATION
  2. NEULASTA [Concomitant]
     Active Substance: PEGFILGRASTIM
     Indication: PRODUCT USED FOR UNKNOWN INDICATION
  3. TIBSOVO [Suspect]
     Active Substance: IVOSIDENIB
     Indication: ACUTE MYELOID LEUKAEMIA
     Dosage: 250MG, 2 TABLETS (500MG) DAILY
     Route: 048
     Dates: start: 20180907, end: 201809
  4. ATIVAN [Concomitant]
     Active Substance: LORAZEPAM
     Indication: PRODUCT USED FOR UNKNOWN INDICATION
  5. TIBSOVO [Suspect]
     Active Substance: IVOSIDENIB
     Dosage: 250MG QD
     Route: 048
     Dates: start: 20180910, end: 20180911

REACTIONS (3)
  - Bone pain [Recovered/Resolved]
  - Back pain [Recovered/Resolved]
  - Acute myeloid leukaemia refractory [Fatal]

NARRATIVE: CASE EVENT DATE: 20180908
